FAERS Safety Report 8102236-5 (Version None)
Quarter: 2012Q1

REPORT INFORMATION
  Report Type: 
  Country: None (occurrence: None)
  Receive Date: 20120201
  Receipt Date: 20120126
  Transmission Date: 20120608
  Serious: Yes (Hospitalization)
  Sender: FDA-Public Use
  Company Number: US-AMGEN-USASP2012005564

PATIENT
  Age: 63 Year
  Sex: Female

DRUGS (1)
  1. ENBREL [Suspect]
     Indication: RHEUMATOID ARTHRITIS
     Dosage: 25 MG, 2 TIMES/WK
     Dates: start: 20000101

REACTIONS (7)
  - ARTHRALGIA [None]
  - NECK PAIN [None]
  - SINUSITIS [None]
  - PAIN IN EXTREMITY [None]
  - DYSPHONIA [None]
  - HEADACHE [None]
  - LUNG NEOPLASM MALIGNANT [None]
